FAERS Safety Report 7482614-8 (Version None)
Quarter: 2011Q2

REPORT INFORMATION
  Report Type: 
  Country: None (occurrence: None)
  Receive Date: 20110516
  Receipt Date: 20110509
  Transmission Date: 20111010
  Serious: Yes (Other)
  Sender: FDA-Public Use
  Company Number: GB-ELI_LILLY_AND_COMPANY-GB201105002758

PATIENT
  Age: 60 Year
  Sex: Male

DRUGS (2)
  1. ZYPREXA [Concomitant]
     Dosage: 7.5 MG, UNKNOWN
     Dates: start: 20090501
  2. BYETTA [Suspect]
     Dosage: UNK, UNKNOWN

REACTIONS (4)
  - HEPATITIS C [None]
  - JAUNDICE [None]
  - YELLOW SKIN [None]
  - MALAISE [None]
